FAERS Safety Report 16917919 (Version 1)
Quarter: 2019Q4

REPORT INFORMATION
  Report Type: Spontaneous
  Country: US (occurrence: US)
  Receive Date: 20191015
  Receipt Date: 20191015
  Transmission Date: 20200122
  Serious: No
  Sender: FDA-Public Use
  Company Number: US-ADVANZ PHARMA-201910001117

PATIENT

DRUGS (1)
  1. PARNATE,TRANYLCYPROMINE SULFATE (AUTHORIZED GENERIC) [Suspect]
     Active Substance: TRANYLCYPROMINE SULFATE

REACTIONS (2)
  - Drug ineffective [Unknown]
  - Product formulation issue [Unknown]
